FAERS Safety Report 7202293-4 (Version None)
Quarter: 2010Q4

REPORT INFORMATION
  Report Type: 
  Country: None (occurrence: None)
  Receive Date: 20101229
  Receipt Date: 20101223
  Transmission Date: 20110411
  Serious: No
  Sender: FDA-Public Use
  Company Number: US-PFIZER INC-2010178824

PATIENT
  Sex: Female
  Weight: 68 kg

DRUGS (1)
  1. PREMARIN [Suspect]
     Dosage: UNK
     Route: 048
     Dates: start: 19820101

REACTIONS (3)
  - C-REACTIVE PROTEIN INCREASED [None]
  - DYSPEPSIA [None]
  - HEART RATE IRREGULAR [None]
